FAERS Safety Report 8135871-9 (Version None)
Quarter: 2012Q1

REPORT INFORMATION
  Report Type: 
  Country: None (occurrence: None)
  Receive Date: 20120214
  Receipt Date: 20120130
  Transmission Date: 20120608
  Serious: Yes (Other)
  Sender: FDA-Public Use
  Company Number: JP-GLAXOSMITHKLINE-B0779112A

PATIENT
  Age: 85 Year
  Sex: Female

DRUGS (1)
  1. VALTREX [Suspect]
     Indication: HERPES ZOSTER
     Dosage: 1500MG PER DAY
     Route: 048
     Dates: start: 20120123, end: 20120124

REACTIONS (9)
  - HEADACHE [None]
  - RENAL FAILURE ACUTE [None]
  - ABDOMINAL DISCOMFORT [None]
  - URINE OUTPUT DECREASED [None]
  - ENCEPHALOPATHY [None]
  - DYSPEPSIA [None]
  - DECREASED APPETITE [None]
  - MICTURITION FREQUENCY DECREASED [None]
  - BLOOD POTASSIUM INCREASED [None]
